FAERS Safety Report 22326644 (Version 1)
Quarter: 2023Q2

REPORT INFORMATION
  Report Type: Spontaneous
  Country: US (occurrence: US)
  Receive Date: 20230516
  Receipt Date: 20230516
  Transmission Date: 20230721
  Serious: No
  Sender: FDA-Public Use
  Company Number: US-RADIUS HEALTH INC.-2022US004302

PATIENT
  Age: 86 Year
  Sex: Female

DRUGS (2)
  1. TYMLOS [Suspect]
     Active Substance: ABALOPARATIDE
     Indication: Senile osteoporosis
     Dosage: 80 MICROGRAM, QD
     Route: 058
     Dates: start: 202101
  2. TYMLOS [Suspect]
     Active Substance: ABALOPARATIDE
     Indication: Osteoporosis

REACTIONS (3)
  - Condition aggravated [Not Recovered/Not Resolved]
  - Pollakiuria [Not Recovered/Not Resolved]
  - White blood cells urine positive [Not Recovered/Not Resolved]

NARRATIVE: CASE EVENT DATE: 20221101
